FAERS Safety Report 16122453 (Version 1)
Quarter: 2019Q2

REPORT INFORMATION
  Report Type: Spontaneous
  Country: US (occurrence: US)
  Receive Date: 20190326
  Receipt Date: 20190326
  Transmission Date: 20190711
  Serious: No
  Sender: FDA-Public Use
  Company Number: None

PATIENT
  Age: 29 Year
  Sex: Female

DRUGS (4)
  1. BUPROPION. [Concomitant]
     Active Substance: BUPROPION
  2. DAYTRANA [Suspect]
     Active Substance: METHYLPHENIDATE
     Indication: HYPERSOMNIA
     Dosage: ?          QUANTITY:30 PATCH(ES);?
     Route: 062
     Dates: start: 20190212, end: 20190326
  3. ZYRTEC [Concomitant]
     Active Substance: CETIRIZINE HYDROCHLORIDE
  4. LUVOX [Concomitant]
     Active Substance: FLUVOXAMINE MALEATE

REACTIONS (1)
  - Application site pruritus [None]

NARRATIVE: CASE EVENT DATE: 20190320
